FAERS Safety Report 21760330 (Version 1)
Quarter: 2022Q4

REPORT INFORMATION
  Report Type: Spontaneous
  Country: US (occurrence: None)
  Receive Date: 20221220
  Receipt Date: 20221220
  Transmission Date: 20230113
  Serious: Yes (Death)
  Sender: FDA-Public Use
  Company Number: None

PATIENT
  Age: 70 Year
  Sex: Male
  Weight: 104 kg

DRUGS (10)
  1. ABIRATERONE [Suspect]
     Active Substance: ABIRATERONE
     Indication: Neoplasm prostate
     Dosage: FREQUENCY : DAILY;?
     Route: 048
     Dates: start: 20210730
  2. POMALYST [Concomitant]
     Active Substance: POMALIDOMIDE
     Dates: start: 20220920
  3. ACYCLOVIR [Concomitant]
     Active Substance: ACYCLOVIR
  4. DEXAMETHASONE [Concomitant]
     Active Substance: DEXAMETHASONE
  5. ALLOPURINOL [Concomitant]
     Active Substance: ALLOPURINOL
  6. METOPROLOL TARTRATE [Concomitant]
     Active Substance: METOPROLOL TARTRATE
  7. TRESIBA [Concomitant]
     Active Substance: INSULIN DEGLUDEC
  8. Trelegy Ellipta 200mcg [Concomitant]
  9. DULOXETINE [Concomitant]
     Active Substance: DULOXETINE
  10. PREDNISONE [Concomitant]
     Active Substance: PREDNISONE

REACTIONS (1)
  - Death [None]

NARRATIVE: CASE EVENT DATE: 20221219
